FAERS Safety Report 7685843-3 (Version None)
Quarter: 2011Q3

REPORT INFORMATION
  Report Type: 
  Country: None (occurrence: None)
  Receive Date: 20110815
  Receipt Date: 20110815
  Transmission Date: 20111222
  Serious: No
  Sender: FDA-Public Use
  Company Number: None

PATIENT
  Sex: Female
  Weight: 60.3284 kg

DRUGS (2)
  1. PRADAXA [Suspect]
     Dosage: 2 PRADAXA DAILY 2 TEASPOONS CARAFATE
  2. OMEPRAZOLE [Suspect]
     Dosage: 1 OMEPRAZOLE DAILY

REACTIONS (3)
  - OESOPHAGEAL DISORDER [None]
  - OESOPHAGEAL PAIN [None]
  - ODYNOPHAGIA [None]
